FAERS Safety Report 5543954-2 (Version None)
Quarter: 2007Q4

REPORT INFORMATION
  Report Type: 
  Country: None (occurrence: None)
  Receive Date: 20071210
  Receipt Date: 20070411
  Transmission Date: 20080405
  Serious: No
  Sender: FDA-Public Use
  Company Number: US-AMGEN-KDL194103

PATIENT
  Age: 75 Year
  Sex: Female

DRUGS (8)
  1. ENBREL [Suspect]
     Indication: RHEUMATOID ARTHRITIS
     Route: 058
  2. METHOTREXATE [Concomitant]
     Dates: end: 20060601
  3. FOSAMAX [Concomitant]
  4. FOLIC ACID [Concomitant]
  5. ALEVE [Concomitant]
  6. VITAMIN C AND E [Concomitant]
  7. PRILOSEC [Concomitant]
  8. LEVOXYL [Concomitant]

REACTIONS (5)
  - ALOPECIA [None]
  - INJECTION SITE REACTION [None]
  - JOINT EFFUSION [None]
  - PERIARTHRITIS [None]
  - RHEUMATOID ARTHRITIS [None]
